FAERS Safety Report 12090054 (Version 1)
Quarter: 2016Q1

REPORT INFORMATION
  Report Type: Spontaneous
  Country: US (occurrence: US)
  Receive Date: 20160218
  Receipt Date: 20160218
  Transmission Date: 20160526
  Serious: Yes (Other)
  Sender: FDA-Public Use
  Company Number: PHEH2016US003279

PATIENT
  Age: 54 Year
  Sex: Male

DRUGS (1)
  1. GILENYA [Suspect]
     Active Substance: FINGOLIMOD HYDROCHLORIDE
     Indication: PRODUCT USED FOR UNKNOWN INDICATION
     Dosage: UNK
     Route: 065
     Dates: start: 20101108

REACTIONS (25)
  - Dysarthria [Unknown]
  - Haemoglobin decreased [Unknown]
  - Lymphocyte count decreased [Unknown]
  - Sinusitis [Unknown]
  - Monocyte count increased [Unknown]
  - Red cell distribution width increased [Unknown]
  - T-lymphocyte count decreased [Unknown]
  - Photophobia [Unknown]
  - Musculoskeletal stiffness [Unknown]
  - Haematocrit decreased [Unknown]
  - Eosinophil count increased [Unknown]
  - Albumin globulin ratio increased [Unknown]
  - Red blood cell count decreased [Unknown]
  - White blood cell count decreased [Unknown]
  - Blood glucose increased [Unknown]
  - Confusional state [Unknown]
  - Agitation [Unknown]
  - CD8 lymphocytes decreased [Unknown]
  - Neutrophil count increased [Unknown]
  - Headache [Unknown]
  - CD4 lymphocytes decreased [Unknown]
  - Meningitis cryptococcal [Unknown]
  - Globulins decreased [Unknown]
  - Gait disturbance [Unknown]
  - CD4/CD8 ratio decreased [Unknown]

NARRATIVE: CASE EVENT DATE: 20110308
